FAERS Safety Report 5601037-7 (Version None)
Quarter: 2008Q1

REPORT INFORMATION
  Report Type: 
  Country: None (occurrence: None)
  Receive Date: 20080124
  Receipt Date: 20080116
  Transmission Date: 20080703
  Serious: Yes (Hospitalization, Other)
  Sender: FDA-Public Use
  Company Number: US-ROCHE-502764

PATIENT
  Age: 43 Year
  Sex: Male

DRUGS (6)
  1. VALIUM [Suspect]
     Indication: ANXIETY
     Dosage: DOSAGE FORM IS ^PILLS^
     Route: 048
  2. VALIUM [Suspect]
     Route: 048
  3. MORPHINE [Concomitant]
  4. MS CONTIN [Concomitant]
  5. TRICOR [Concomitant]
  6. VITAMIN B [Concomitant]

REACTIONS (8)
  - DIABETES MELLITUS [None]
  - DRUG EFFECT DECREASED [None]
  - DRUG TOLERANCE [None]
  - NO ADVERSE EVENT [None]
  - OVERDOSE [None]
  - PARANOIA [None]
  - PHARMACEUTICAL PRODUCT COUNTERFEIT [None]
  - WEIGHT DECREASED [None]
